FAERS Safety Report 7335829-3 (Version None)
Quarter: 2011Q1

REPORT INFORMATION
  Report Type: 
  Country: None (occurrence: None)
  Receive Date: 20110307
  Receipt Date: 20110225
  Transmission Date: 20110831
  Serious: Yes (Disabling, Other)
  Sender: FDA-Public Use
  Company Number: US-MERCK-1006USA00660

PATIENT
  Age: 68 Year
  Sex: Female

DRUGS (6)
  1. FOSAMAX [Suspect]
     Route: 048
     Dates: start: 19990716, end: 20010313
  2. FOSAMAX [Suspect]
     Route: 048
     Dates: start: 19990716, end: 20010313
  3. FOSAMAX PLUS D [Suspect]
     Indication: OSTEOPENIA
     Route: 048
     Dates: start: 20080126, end: 20080711
  4. FOSAMAX [Suspect]
     Indication: OSTEOPENIA
     Route: 048
     Dates: start: 20010614, end: 20071105
  5. FOSAMAX [Suspect]
     Indication: OSTEOPOROSIS
     Route: 048
     Dates: start: 20010614, end: 20071105
  6. FOSAMAX PLUS D [Suspect]
     Indication: OSTEOPOROSIS
     Route: 048
     Dates: start: 20080126, end: 20080711

REACTIONS (8)
  - LOOSE TOOTH [None]
  - INJURY [None]
  - HYPERTENSION [None]
  - FEMUR FRACTURE [None]
  - FALL [None]
  - STRESS FRACTURE [None]
  - BONE DENSITY DECREASED [None]
  - TOOTH DISORDER [None]
